FAERS Safety Report 10771926 (Version 1)
Quarter: 2015Q1

REPORT INFORMATION
  Report Type: Spontaneous
  Country: US (occurrence: US)
  Receive Date: 20150206
  Receipt Date: 20150206
  Transmission Date: 20150721
  Serious: Yes (Other)
  Sender: FDA-Public Use
  Company Number: US-CELGENE-163-50794-13113203

PATIENT

DRUGS (4)
  1. VIDAZA [Suspect]
     Active Substance: AZACITIDINE
     Indication: ACUTE MYELOID LEUKAEMIA
     Dosage: 75 MG/M^2
     Route: 065
  2. MIDOSTAURIN [Suspect]
     Active Substance: MIDOSTAURIN
     Indication: ACUTE MYELOID LEUKAEMIA
     Route: 048
  3. MIDOSTAURIN [Suspect]
     Active Substance: MIDOSTAURIN
     Indication: MYELODYSPLASTIC SYNDROME
     Route: 048
  4. VIDAZA [Suspect]
     Active Substance: AZACITIDINE
     Indication: MYELODYSPLASTIC SYNDROME

REACTIONS (18)
  - Thrombocytopenia [Unknown]
  - Hyperglycaemia [Unknown]
  - Acute kidney injury [Unknown]
  - Hyponatraemia [Unknown]
  - Nausea [Unknown]
  - Anaemia [Unknown]
  - Gastric haemorrhage [Unknown]
  - Rash [Unknown]
  - Hypokalaemia [Unknown]
  - Electrocardiogram QT prolonged [Unknown]
  - Aspartate aminotransferase increased [Unknown]
  - Hyperbilirubinaemia [Unknown]
  - Ejection fraction decreased [Recovered/Resolved]
  - Neutropenia [Unknown]
  - Infection [Unknown]
  - Hyperuricaemia [Unknown]
  - Vomiting [Unknown]
  - Thrombosis [Unknown]
